FAERS Safety Report 22954918 (Version 8)
Quarter: 2024Q4

REPORT INFORMATION
  Report Type: Spontaneous
  Country: US (occurrence: US)
  Receive Date: 20230918
  Receipt Date: 20241009
  Transmission Date: 20250114
  Serious: Yes (Hospitalization, Other)
  Sender: SANOFI AVENTIS
  Company Number: US-SA-SAC20230915000524

PATIENT
  Age: 59 Year
  Sex: Female

DRUGS (4)
  1. REZUROCK [Suspect]
     Active Substance: BELUMOSUDIL
     Indication: Chronic graft versus host disease
     Dosage: 200 MG, BID
     Route: 048
     Dates: start: 20230823
  2. REZUROCK [Suspect]
     Active Substance: BELUMOSUDIL
     Dosage: 200 MG, QD
     Route: 048
     Dates: start: 20230829
  3. QUERCETIN [Suspect]
     Active Substance: QUERCETIN
     Dosage: UNK
  4. SIROLIMUS [Suspect]
     Active Substance: SIROLIMUS
     Dosage: UNK

REACTIONS (19)
  - Squamous cell carcinoma [Unknown]
  - Staphylococcal infection [Unknown]
  - Inflammation [Unknown]
  - Skin laceration [Unknown]
  - Palpitations [Unknown]
  - Hyperhidrosis [Unknown]
  - Blood blister [Unknown]
  - Oral mucosal blistering [Unknown]
  - Lip blister [Unknown]
  - Spinal pain [Unknown]
  - Limb discomfort [Unknown]
  - Lung opacity [Not Recovered/Not Resolved]
  - Vision blurred [Unknown]
  - Discomfort [Unknown]
  - Muscle twitching [Unknown]
  - Illness [Unknown]
  - Neck pain [Unknown]
  - Muscle spasms [Unknown]
  - Inappropriate schedule of product administration [Unknown]

NARRATIVE: CASE EVENT DATE: 20230101
